FAERS Safety Report 5401706-8 (Version None)
Quarter: 2007Q3

REPORT INFORMATION
  Report Type: 
  Country: None (occurrence: None)
  Receive Date: 20070731
  Receipt Date: 20070718
  Transmission Date: 20080115
  Serious: Yes (Other)
  Sender: FDA-Public Use
  Company Number: US-ELI_LILLY_AND_COMPANY-US200707003686

PATIENT
  Age: 65 Year
  Sex: Male

DRUGS (2)
  1. CYMBALTA [Suspect]
     Indication: DEPRESSION
     Dosage: UNK MG, DAILY (1/D)
     Route: 048
     Dates: start: 20070101, end: 20070101
  2. CYMBALTA [Suspect]
     Dosage: UNK MG, QOD
     Route: 048
     Dates: start: 20070101

REACTIONS (2)
  - IMPAIRED DRIVING ABILITY [None]
  - METASTATIC RENAL CELL CARCINOMA [None]
